FAERS Safety Report 4274434-2 (Version None)
Quarter: 2004Q1

REPORT INFORMATION
  Report Type: 
  Country: None (occurrence: None)
  Receive Date: 20040120
  Receipt Date: 20030415
  Transmission Date: 20041129
  Serious: Yes (Hospitalization)
  Sender: FDA-Public Use
  Company Number: US-BRISTOL-MYERS SQUIBB COMPANY-12242814

PATIENT
  Age: 5 Year
  Sex: Male
  Weight: 20 kg

DRUGS (7)
  1. IFEX [Suspect]
     Indication: NEUROBLASTOMA
     Route: 042
     Dates: start: 20030308, end: 20030310
  2. TOPOTECAN [Concomitant]
     Dosage: 30 MIN INFUSION
     Route: 042
     Dates: start: 20030308, end: 20030310
  3. CARBOPLATIN [Concomitant]
     Dosage: 1 HOUR INFUSION
     Route: 042
     Dates: start: 20030308, end: 20030310
  4. METHYLENE BLUE [Concomitant]
     Indication: PROPHYLAXIS
     Route: 042
     Dates: start: 20030308, end: 20030311
  5. BACTRIM [Concomitant]
     Dosage: 48 MG BID 3X/WK
     Route: 048
  6. FLUCONAZOLE [Concomitant]
     Route: 048
  7. PREVACID [Concomitant]
     Route: 048

REACTIONS (1)
  - NEUROTOXICITY [None]
